FAERS Safety Report 11969792 (Version 2)
Quarter: 2016Q1

REPORT INFORMATION
  Report Type: Spontaneous
  Country: US (occurrence: US)
  Receive Date: 20160128
  Receipt Date: 20160210
  Transmission Date: 20160526
  Serious: Yes (Death, Hospitalization, Other)
  Sender: FDA-Public Use
  Company Number: US-009507513-1601USA010143

PATIENT
  Sex: Male
  Weight: 62.86 kg

DRUGS (9)
  1. JANUMET [Suspect]
     Active Substance: METFORMIN HYDROCHLORIDE\SITAGLIPTIN PHOSPHATE
     Dosage: 50-1000 MG, BID
     Route: 048
     Dates: start: 20110404, end: 20120202
  2. JANUMET XR [Suspect]
     Active Substance: METFORMIN HYDROCHLORIDE\SITAGLIPTIN PHOSPHATE
     Indication: TYPE 2 DIABETES MELLITUS
     Dosage: 100-1000 MG, ONCE DAILY
     Route: 048
     Dates: start: 20130222, end: 20140415
  3. JANUMET XR [Suspect]
     Active Substance: METFORMIN HYDROCHLORIDE\SITAGLIPTIN PHOSPHATE
     Dosage: 50-1000MG
     Route: 048
     Dates: start: 20131121
  4. VICTOZA [Suspect]
     Active Substance: LIRAGLUTIDE
     Dosage: 1.2 MG/ML, DAILY
     Route: 058
     Dates: start: 20120112, end: 20120201
  5. VICTOZA [Suspect]
     Active Substance: LIRAGLUTIDE
     Dosage: 1.8 MG/ML,
     Route: 058
     Dates: start: 20120202, end: 20130222
  6. JANUMET [Suspect]
     Active Substance: METFORMIN HYDROCHLORIDE\SITAGLIPTIN PHOSPHATE
     Indication: TYPE 2 DIABETES MELLITUS
     Dosage: 50-500 MG, BID
     Route: 048
     Dates: start: 20100331, end: 20110404
  7. JANUVIA [Suspect]
     Active Substance: SITAGLIPTIN PHOSPHATE
     Indication: TYPE 2 DIABETES MELLITUS
     Dosage: 100 MG, ONCE DAILY
     Route: 048
     Dates: start: 20090413, end: 20100331
  8. JANUMET XR [Suspect]
     Active Substance: METFORMIN HYDROCHLORIDE\SITAGLIPTIN PHOSPHATE
     Dosage: 50-1000 MG, ONCE DAILY
     Route: 048
     Dates: start: 20131121, end: 20140626
  9. VICTOZA [Suspect]
     Active Substance: LIRAGLUTIDE
     Indication: TYPE 2 DIABETES MELLITUS
     Dosage: 0.6 MG/ML, ONCE DAILY
     Route: 058
     Dates: start: 20120105, end: 20120111

REACTIONS (28)
  - Large intestine polyp [Unknown]
  - Abdominal pain [Unknown]
  - Dyspepsia [Unknown]
  - Diabetic vascular disorder [Unknown]
  - Pancreatic carcinoma metastatic [Unknown]
  - Death [Fatal]
  - Goitre [Unknown]
  - Foot deformity [Unknown]
  - Hypertension [Unknown]
  - Nocturia [Unknown]
  - Seborrhoea [Unknown]
  - Metastases to peritoneum [Unknown]
  - Basal cell carcinoma [Unknown]
  - Pancreatitis acute [Unknown]
  - Sciatica [Unknown]
  - Inappropriate schedule of drug administration [Unknown]
  - Hyperlipidaemia [Unknown]
  - Osteoarthritis [Unknown]
  - Lymphadenopathy [Unknown]
  - Metastases to liver [Unknown]
  - Diverticulum [Unknown]
  - Osteoarthritis [Unknown]
  - Regurgitation [Unknown]
  - Constipation [Unknown]
  - Bladder cancer [Unknown]
  - Pulmonary embolism [Unknown]
  - Nephrolithiasis [Unknown]
  - Arthralgia [Unknown]

NARRATIVE: CASE EVENT DATE: 2011
